FAERS Safety Report 7632328-6 (Version None)
Quarter: 2011Q3

REPORT INFORMATION
  Report Type: 
  Country: None (occurrence: None)
  Receive Date: 20110725
  Receipt Date: 20100811
  Transmission Date: 20111222
  Serious: No
  Sender: FDA-Public Use
  Company Number: US-BRISTOL-MYERS SQUIBB COMPANY-15222029

PATIENT
  Age: 77 Year
  Sex: Male
  Weight: 102 kg

DRUGS (13)
  1. ZOCOR [Suspect]
  2. PLAVIX [Concomitant]
  3. VITAMIN E [Suspect]
  4. TOPROL-XL [Suspect]
  5. MULTI-VITAMIN [Suspect]
  6. AMLODIPINE [Suspect]
  7. CELEBREX [Suspect]
  8. FLOMAX [Suspect]
  9. ASCORBIC ACID [Suspect]
  10. NAMENDA [Suspect]
  11. COUMADIN [Suspect]
     Indication: ATRIAL FIBRILLATION
     Dosage: INTERRUPTED ON 26JUL10,02AUG10 JUL10-7.5MG/D FOR 1 DAY
     Route: 048
     Dates: start: 20100401
  12. DETROL LA [Suspect]
  13. ARICEPT [Suspect]

REACTIONS (1)
  - INTERNATIONAL NORMALISED RATIO INCREASED [None]
